FAERS Safety Report 4876634-7 (Version None)
Quarter: 2005Q4

REPORT INFORMATION
  Report Type: 
  Country: None (occurrence: None)
  Receive Date: 20051206
  Receipt Date: 20050902
  Transmission Date: 20060501
  Serious: No
  Sender: FDA-Public Use
  Company Number: USA0506101392

PATIENT
  Age: 64 Year
  Sex: Female

DRUGS (13)
  1. CYMBALTA [Suspect]
     Indication: NEURALGIA
     Dosage: 30 MG/3 DAY
     Dates: start: 20050101
  2. TRAZODONE [Concomitant]
  3. HYDROCHLOROTHIAZIDE [Concomitant]
  4. CLONIDINE [Concomitant]
  5. ALLEGRA [Concomitant]
  6. RESTORIL [Concomitant]
  7. FAMVIR (PENCICLOVIR) [Concomitant]
  8. GLUCOSAMINE [Concomitant]
  9. ACETYLLUCINE LYSINE [Concomitant]
  10. OMEGA 3 (FISH OIL) [Concomitant]
  11. COQ10 (UBIDECARENONE) [Concomitant]
  12. ASCORBIC ACID [Concomitant]
  13. SENNA [Concomitant]

REACTIONS (3)
  - BALANCE DISORDER [None]
  - HYPERHIDROSIS [None]
  - NAUSEA [None]
